FAERS Safety Report 16696607 (Version 1)
Quarter: 2019Q3

REPORT INFORMATION
  Report Type: Spontaneous
  Country: US (occurrence: US)
  Receive Date: 20190626
  Receipt Date: 20190626
  Transmission Date: 20191004
  Serious: Yes (Death, Other)
  Sender: FDA-Public Use
  Company Number: None

PATIENT
  Age: 50 Year
  Sex: Female
  Weight: 56.7 kg

DRUGS (2)
  1. NAMENDA [Suspect]
     Active Substance: MEMANTINE HYDROCHLORIDE
     Indication: MIGRAINE WITH AURA
     Route: 048
     Dates: start: 201901, end: 201902
  2. AJOVY [Suspect]
     Active Substance: FREMANEZUMAB-VFRM
     Indication: MIGRAINE WITH AURA
     Dosage: ?          OTHER DOSE:22.5/1.5 MG/ML;?
     Route: 058
     Dates: start: 201901, end: 201902

REACTIONS (2)
  - Drug interaction [None]
  - Suicidal ideation [None]

NARRATIVE: CASE EVENT DATE: 20190211
